FAERS Safety Report 23653958 (Version 1)
Quarter: 2024Q1

REPORT INFORMATION
  Report Type: Report from Study
  Country: JP (occurrence: None)
  Receive Date: 20240320
  Receipt Date: 20240320
  Transmission Date: 20240410
  Serious: Yes (Death)
  Sender: FDA-Public Use
  Company Number: 2024A057749

PATIENT
  Age: 76 Year
  Sex: Male
  Weight: 63 kg

DRUGS (11)
  1. EVUSHELD [Suspect]
     Active Substance: CILGAVIMAB\TIXAGEVIMAB
     Indication: COVID-19 prophylaxis
     Route: 030
     Dates: start: 20230817
  2. REBAMIPIDE [Concomitant]
     Active Substance: REBAMIPIDE
     Indication: Chronic gastritis
     Dosage: DOSE UNKNOWN
     Route: 048
     Dates: end: 20231226
  3. METHYLCOBALAMIN [Concomitant]
     Active Substance: METHYLCOBALAMIN
     Indication: Neuropathy peripheral
     Dosage: DOSE UNKNOWN
     Route: 048
     Dates: end: 20231226
  4. LANSOPRAZOLE [Concomitant]
     Active Substance: LANSOPRAZOLE
     Indication: Prophylaxis
     Dosage: DOSE UNKNOWN
     Route: 048
     Dates: end: 20231226
  5. FLUCONAZOLE [Concomitant]
     Active Substance: FLUCONAZOLE
     Indication: Prophylaxis
     Dosage: DOSE UNKNOWN
     Route: 048
     Dates: end: 20231226
  6. ACYCLOVIR [Concomitant]
     Active Substance: ACYCLOVIR
     Indication: Prophylaxis
     Dosage: DOSE UNKNOWN
     Route: 048
     Dates: end: 20231226
  7. SULFAMETHOXAZOLE\TRIMETHOPRIM [Concomitant]
     Active Substance: SULFAMETHOXAZOLE\TRIMETHOPRIM
     Indication: Prophylaxis
     Dosage: DOSE UNKNOWN
     Route: 048
     Dates: end: 20231226
  8. OMEGA-3-ACID ETHYL ESTERS [Concomitant]
     Active Substance: OMEGA-3-ACID ETHYL ESTERS
     Indication: Hyperlipidaemia
     Dosage: DOSE UNKNOWN
     Route: 048
     Dates: end: 20231226
  9. RITUXIMAB [Concomitant]
     Active Substance: RITUXIMAB
     Indication: Lymphoma
     Dosage: DOSE UNKNOWN
     Route: 065
     Dates: start: 20230710, end: 20231226
  10. GEMCITABINE [Concomitant]
     Active Substance: GEMCITABINE
     Indication: Lymphoma
     Dosage: DOSE UNKNOWN
     Route: 065
     Dates: start: 20230710, end: 20231226
  11. DEXAMETHASONE SODIUM PHOSPHATE [Concomitant]
     Active Substance: DEXAMETHASONE PHOSPHATE\DEXAMETHASONE SODIUM PHOSPHATE
     Indication: Lymphoma
     Dosage: DOSE UNKNOWN
     Route: 065
     Dates: start: 20230710, end: 20231226

REACTIONS (1)
  - Lymphoma [Fatal]
